FAERS Safety Report 25476808 (Version 1)
Quarter: 2025Q2

REPORT INFORMATION
  Report Type: Report from Study
  Country: CA (occurrence: CA)
  Receive Date: 20250625
  Receipt Date: 20250625
  Transmission Date: 20250716
  Serious: Yes (Hospitalization)
  Sender: CSL BEHRING
  Company Number: CA-BEH-2025202051

PATIENT
  Age: 60 Year
  Sex: Female
  Weight: 84.2 kg

DRUGS (23)
  1. HIZENTRA [Suspect]
     Active Substance: HUMAN IMMUNOGLOBULIN G
     Indication: Secondary immunodeficiency
     Dosage: 7 G, QW
     Route: 058
     Dates: start: 20250409
  2. GABAPENTIN [Concomitant]
     Active Substance: GABAPENTIN
  3. DICLOFENAC [Concomitant]
     Active Substance: DICLOFENAC
  4. MISOPROSTOL [Concomitant]
     Active Substance: MISOPROSTOL
  5. ESTROGENS [Concomitant]
     Active Substance: ESTROGENS
  6. ONDANSETRON [Concomitant]
     Active Substance: ONDANSETRON
  7. MORPHINE [Concomitant]
     Active Substance: MORPHINE
  8. ZOPICLONE [Concomitant]
     Active Substance: ZOPICLONE
  9. BUTYLSCOPOLAMINE BROMIDE [Concomitant]
     Active Substance: BUTYLSCOPOLAMINE BROMIDE
  10. TEMAZEPAM [Concomitant]
     Active Substance: TEMAZEPAM
  11. CHOLESTYRAMINE [Concomitant]
     Active Substance: CHOLESTYRAMINE
  12. ASPIRIN [Concomitant]
     Active Substance: ASPIRIN
  13. METOCLOPRAMIDE [Concomitant]
     Active Substance: METOCLOPRAMIDE
  14. VALACYCLOVIR [Concomitant]
     Active Substance: VALACYCLOVIR HYDROCHLORIDE
  15. RANITIDINE [Concomitant]
     Active Substance: RANITIDINE
  16. CETIRIZINE [Concomitant]
     Active Substance: CETIRIZINE HYDROCHLORIDE
  17. TRAZODONE [Concomitant]
     Active Substance: TRAZODONE HYDROCHLORIDE
  18. DEXAMETHASONE [Concomitant]
     Active Substance: DEXAMETHASONE
  19. MAGNESIUM [Concomitant]
     Active Substance: MAGNESIUM
  20. VITAMIN D [Concomitant]
     Active Substance: VITAMIN D NOS
  21. CALCIUM [Concomitant]
     Active Substance: CALCIUM
  22. VITAMIN B COMPLEX [Concomitant]
     Active Substance: CYANOCOBALAMIN\DEXPANTHENOL\NIACINAMIDE\PYRIDOXINE HYDROCHLORIDE\RIBOFLAVIN 5^-PHOSPHATE SODIUM\THIA
  23. VITAMINS [Concomitant]
     Active Substance: VITAMINS

REACTIONS (4)
  - Hospitalisation [Unknown]
  - Pain [Unknown]
  - Incorrect dose administered [Unknown]
  - Incorrect product administration duration [Unknown]

NARRATIVE: CASE EVENT DATE: 20250409
